FAERS Safety Report 7484178-1 (Version None)
Quarter: 2011Q2

REPORT INFORMATION
  Report Type: 
  Country: None (occurrence: None)
  Receive Date: 20110509
  Receipt Date: 20110411
  Transmission Date: 20111010
  Serious: Yes (Life-Threatening)
  Sender: FDA-Public Use
  Company Number: DKLU1070290

PATIENT
  Age: 2 Year
  Sex: Female

DRUGS (1)
  1. ELSPAR [Suspect]
     Indication: LEUKAEMIA
     Dosage: 4000 IU INTERNATIONAL
     Dates: start: 20100718, end: 20110311

REACTIONS (3)
  - AGITATION [None]
  - BODY TEMPERATURE INCREASED [None]
  - HYPERHIDROSIS [None]
